FAERS Safety Report 7900415-0 (Version None)
Quarter: 2011Q4

REPORT INFORMATION
  Report Type: 
  Country: None (occurrence: None)
  Receive Date: 20111108
  Receipt Date: 20111102
  Transmission Date: 20120403
  Serious: No
  Sender: FDA-Public Use
  Company Number: US-PFIZER INC-2011268589

PATIENT
  Sex: Male
  Weight: 102 kg

DRUGS (6)
  1. ZOCOR [Concomitant]
     Dosage: 40 MG, UNK
  2. ZYVOX [Suspect]
     Indication: URINARY TRACT INFECTION
     Dosage: 600 MG, 2X/DAY
     Route: 048
     Dates: start: 20110802, end: 20111101
  3. TRAZODONE [Concomitant]
     Indication: INSOMNIA
     Dosage: 100 MG, 1X/DAY
  4. COUMADIN [Concomitant]
     Dosage: 5 MG, UNK
  5. SINEMET [Concomitant]
     Indication: PARKINSON'S DISEASE
     Dosage: 25/100 MG, UNK
  6. SINEMET CR [Concomitant]
     Indication: PARKINSON'S DISEASE
     Dosage: 50/200 MG, UNK

REACTIONS (2)
  - CONFUSIONAL STATE [None]
  - IRRITABILITY [None]
